FAERS Safety Report 12737374 (Version 2)
Quarter: 2016Q3

REPORT INFORMATION
  Report Type: Report from Study
  Country: GR (occurrence: GR)
  Receive Date: 20160912
  Receipt Date: 20160915
  Transmission Date: 20161109
  Serious: Yes (Death)
  Sender: FDA-Public Use
  Company Number: GR-ABBVIE-16P-066-1723906-00

PATIENT
  Age: 77 Year
  Sex: Female

DRUGS (3)
  1. DEPRERAM [Concomitant]
     Indication: DEPRESSION
     Route: 048
  2. DUODOPA [Suspect]
     Active Substance: CARBIDOPA\LEVODOPA
     Indication: PARKINSON^S DISEASE
     Route: 050
     Dates: start: 20140616
  3. XANAX [Concomitant]
     Active Substance: ALPRAZOLAM
     Indication: ANXIETY
     Route: 048

REACTIONS (2)
  - Dyspnoea [Fatal]
  - Pulmonary oedema [Fatal]

NARRATIVE: CASE EVENT DATE: 20160905
